FAERS Safety Report 14610306 (Version 3)
Quarter: 2024Q2

REPORT INFORMATION
  Report Type: Spontaneous
  Country: DE (occurrence: DE)
  Receive Date: 20180307
  Receipt Date: 20240423
  Transmission Date: 20240716
  Serious: Yes (Hospitalization, Congenital Anomaly, Other)
  Sender: FDA-Public Use
  Company Number: DE-ABBVIE-18P-062-2270871-00

PATIENT
  Sex: Female

DRUGS (2)
  1. VALPROATE SODIUM [Suspect]
     Active Substance: VALPROATE SODIUM
     Indication: Maternal exposure timing unspecified
     Route: 064
  2. LAMOTRIGINE [Suspect]
     Active Substance: LAMOTRIGINE
     Indication: Maternal exposure timing unspecified
     Route: 064

REACTIONS (2)
  - Foetal anticonvulsant syndrome [Unknown]
  - Foetal exposure during pregnancy [Unknown]
